FAERS Safety Report 17546317 (Version 1)
Quarter: 2020Q1

REPORT INFORMATION
  Report Type: Spontaneous
  Country: US (occurrence: US)
  Receive Date: 20200316
  Receipt Date: 20200316
  Transmission Date: 20200409
  Serious: No
  Sender: FDA-Public Use
  Company Number: US-TEVA-2020-US-1199830

PATIENT
  Sex: Female

DRUGS (1)
  1. ALBUTEROL SULFATE HFA [Suspect]
     Active Substance: ALBUTEROL SULFATE
     Indication: HYPERSENSITIVITY
     Dosage: INHALE 2 PUFFS EVERY 6 HOURS AS NEEDED
     Route: 055

REACTIONS (3)
  - Aphonia [Unknown]
  - Cardiac disorder [Unknown]
  - Product prescribing error [Unknown]
